FAERS Safety Report 19005293 (Version 2)
Quarter: 2021Q2

REPORT INFORMATION
  Report Type: Other
  Country: JP (occurrence: JP)
  Receive Date: 20210312
  Receipt Date: 20210520
  Transmission Date: 20210717
  Serious: Yes (Other)
  Sender: FDA-Public Use
  Company Number: JP-ROCHE-2489314

PATIENT
  Age: 33 Year
  Sex: Female
  Weight: 64 kg

DRUGS (13)
  1. METHYLPREDNISOLONE. [Concomitant]
     Active Substance: METHYLPREDNISOLONE
     Indication: GOODPASTURE^S SYNDROME
     Route: 065
  2. CYCLOPHOSPHAMIDE. [Concomitant]
     Active Substance: CYCLOPHOSPHAMIDE
     Indication: ANTI-GLOMERULAR BASEMENT MEMBRANE DISEASE
     Route: 042
  3. MIDAZOLAM. [Concomitant]
     Active Substance: MIDAZOLAM
     Indication: POSTERIOR REVERSIBLE ENCEPHALOPATHY SYNDROME
     Route: 065
  4. PREDNISOLONE. [Concomitant]
     Active Substance: PREDNISOLONE
     Route: 048
  5. PALIPERIDONE. [Concomitant]
     Active Substance: PALIPERIDONE
     Indication: SCHIZOPHRENIA
  6. PREDNISOLONE. [Concomitant]
     Active Substance: PREDNISOLONE
     Indication: ANTI-GLOMERULAR BASEMENT MEMBRANE DISEASE
     Route: 048
  7. NICARDIPINE HYDROCHLORIDE. [Concomitant]
     Active Substance: NICARDIPINE HYDROCHLORIDE
     Indication: POSTERIOR REVERSIBLE ENCEPHALOPATHY SYNDROME
     Route: 065
  8. LEVETIRACETAM. [Concomitant]
     Active Substance: LEVETIRACETAM
     Indication: POSTERIOR REVERSIBLE ENCEPHALOPATHY SYNDROME
     Route: 065
  9. RITUXAN [Suspect]
     Active Substance: RITUXIMAB
     Indication: ANTI-GLOMERULAR BASEMENT MEMBRANE DISEASE
     Dosage: 23RD HOSPITAL DAY
     Route: 041
     Dates: start: 20170201, end: 201702
  10. PHENYTOIN. [Concomitant]
     Active Substance: PHENYTOIN
     Indication: SEIZURE
  11. NITROGLYCERINE [Concomitant]
     Active Substance: NITROGLYCERIN
     Indication: HYPERTENSION
     Route: 042
  12. OLANZAPINE. [Concomitant]
     Active Substance: OLANZAPINE
     Indication: SCHIZOPHRENIA
  13. MIDAZOLAM. [Concomitant]
     Active Substance: MIDAZOLAM
     Indication: SEIZURE

REACTIONS (3)
  - Off label use [Unknown]
  - Immunodeficiency [Unknown]
  - Pneumonia [Unknown]
